FAERS Safety Report 9370930 (Version 2)
Quarter: 2013Q3

REPORT INFORMATION
  Report Type: Spontaneous
  Country: IL (occurrence: IL)
  Receive Date: 20130627
  Receipt Date: 20130710
  Transmission Date: 20140515
  Serious: Yes (Other)
  Sender: FDA-Public Use
  Company Number: IL-ROCHE-1241151

PATIENT
  Age: 65 Year
  Sex: Female

DRUGS (4)
  1. MABTHERA [Suspect]
     Indication: SPLENIC MARGINAL ZONE LYMPHOMA
     Route: 065
  2. CYCLOPHOSPHAMIDE [Concomitant]
     Indication: SPLENIC MARGINAL ZONE LYMPHOMA
  3. VINCRISTINE [Concomitant]
     Indication: SPLENIC MARGINAL ZONE LYMPHOMA
  4. PREDNISOLONE [Concomitant]
     Indication: SPLENIC MARGINAL ZONE LYMPHOMA

REACTIONS (3)
  - Respiratory failure [Recovering/Resolving]
  - Infection [Not Recovered/Not Resolved]
  - Dyspnoea [Recovering/Resolving]
